FAERS Safety Report 9204214 (Version 1)
Quarter: 2013Q1

REPORT INFORMATION
  Report Type: Spontaneous
  Country: US (occurrence: None)
  Receive Date: 20120709
  Receipt Date: 20120709
  Transmission Date: 20140127
  Serious: No
  Sender: FDA-Public Use
  Company Number: 2012HGS-003475

PATIENT
  Age: 81 Year
  Sex: Female
  Weight: 77.11 kg

DRUGS (7)
  1. BENLYSTA [Suspect]
     Indication: SYSTEMIC LUPUS ERYTHEMATOSUS
     Dosage: 1 IN 28 D
     Route: 041
     Dates: start: 20120403
  2. CELLCEPT (MYCOPHENOLATE MOFETIL) (MYCOPHENOLATE MOFETIL) [Concomitant]
  3. PREDNISONE (PREDNISONE)(PREDNISONE) [Concomitant]
  4. CRESTOR  (ROSUVASTATIN CALCIUM) (ROSUVASTATIN CALCIUM) [Concomitant]
  5. FOLIC ACID (FOLIC ACID) (FOLIC ACID) [Concomitant]
  6. ZOLOFT (SERTRALINE HYDROCHLORIDE) (SERTRALINE HYDROCHLORIDE) [Concomitant]
  7. LEVOTHYROXINE (LEVOTHYROXINE) (LEVOTHYROXINE) [Concomitant]

REACTIONS (8)
  - Nasopharyngitis [None]
  - Lethargy [None]
  - Asthenia [None]
  - Cough [None]
  - Oropharyngeal pain [None]
  - Pharyngeal oedema [None]
  - Throat irritation [None]
  - Depression [None]
